FAERS Safety Report 8012314-7 (Version None)
Quarter: 2011Q4

REPORT INFORMATION
  Report Type: 
  Country: None (occurrence: None)
  Receive Date: 20111228
  Receipt Date: 20111222
  Transmission Date: 20120403
  Serious: Yes (Other)
  Sender: FDA-Public Use
  Company Number: US-PFIZER INC-2011224446

PATIENT
  Sex: Female

DRUGS (1)
  1. EFFEXOR XR [Suspect]
     Dosage: UNK

REACTIONS (9)
  - THINKING ABNORMAL [None]
  - BLOOD PRESSURE INCREASED [None]
  - MALAISE [None]
  - SUICIDAL IDEATION [None]
  - DEPRESSED MOOD [None]
  - DIZZINESS [None]
  - ACTIVITIES OF DAILY LIVING IMPAIRED [None]
  - NAUSEA [None]
  - GAIT DISTURBANCE [None]
